FAERS Safety Report 7124326-6 (Version None)
Quarter: 2010Q4

REPORT INFORMATION
  Report Type: 
  Country: None (occurrence: None)
  Receive Date: 20101126
  Receipt Date: 20101118
  Transmission Date: 20110411
  Serious: Yes (Other)
  Sender: FDA-Public Use
  Company Number: PHHY2010FR78214

PATIENT
  Age: 47 Year
  Sex: Male

DRUGS (1)
  1. CYCLOSPORINE [Suspect]

REACTIONS (1)
  - BEHCET'S SYNDROME [None]
